FAERS Safety Report 12736612 (Version 1)
Quarter: 2016Q3

REPORT INFORMATION
  Report Type: Spontaneous
  Country: US (occurrence: US)
  Receive Date: 20160913
  Receipt Date: 20160913
  Transmission Date: 20161109
  Serious: No
  Sender: FDA-Public Use
  Company Number: US-JNJFOC-20160624282

PATIENT
  Age: 46 Year
  Sex: Male
  Weight: 95.26 kg

DRUGS (1)
  1. ULTRAM ER [Suspect]
     Active Substance: TRAMADOL HYDROCHLORIDE
     Indication: PAIN
     Route: 048
     Dates: start: 2010, end: 20160625

REACTIONS (4)
  - Breakthrough pain [Unknown]
  - Insomnia [Recovered/Resolved]
  - Drug dose omission [Unknown]
  - Feeling jittery [Recovered/Resolved]

NARRATIVE: CASE EVENT DATE: 201606
